FAERS Safety Report 11733336 (Version 1)
Quarter: 2015Q4

REPORT INFORMATION
  Report Type: Spontaneous
  Country: US (occurrence: US)
  Receive Date: 20151110
  Receipt Date: 20151110
  Transmission Date: 20160304
  Serious: No
  Sender: FDA-Public Use
  Company Number: US-ELI_LILLY_AND_COMPANY-US201203004913

PATIENT
  Age: 58 Year
  Sex: Female

DRUGS (2)
  1. FORTEO [Suspect]
     Active Substance: TERIPARATIDE
     Indication: OSTEOPOROSIS
     Dosage: UNK, QD
     Route: 065
  2. FORTEO [Suspect]
     Active Substance: TERIPARATIDE
     Dosage: UNK, QD

REACTIONS (7)
  - Posture abnormal [Unknown]
  - Drug dose omission [Unknown]
  - Fall [Unknown]
  - Pain [Unknown]
  - Tendon rupture [Unknown]
  - Pain in extremity [Unknown]
  - Arthropathy [Unknown]

NARRATIVE: CASE EVENT DATE: 20120411
